FAERS Safety Report 24640765 (Version 1)
Quarter: 2024Q4

REPORT INFORMATION
  Report Type: Report from Study
  Country: DE (occurrence: DE)
  Receive Date: 20241120
  Receipt Date: 20241120
  Transmission Date: 20250114
  Serious: Yes (Other)
  Sender: BAUSCH AND LOMB
  Company Number: DE-SA-SAC20230530000466

PATIENT
  Age: 76 Year
  Sex: Female

DRUGS (25)
  1. DEXAMETHASONE [Suspect]
     Active Substance: DEXAMETHASONE
     Indication: Plasma cell myeloma refractory
     Dosage: 20 MG, 6 TIMES 1,2,8,9,15,16
     Route: 065
     Dates: start: 20230417, end: 20230503
  2. DEXAMETHASONE [Suspect]
     Active Substance: DEXAMETHASONE
     Dosage: 20 MG; 6 TIMES 1,2,8,9,15,16
     Route: 065
     Dates: start: 20230515, end: 20230531
  3. DEXAMETHASONE [Suspect]
     Active Substance: DEXAMETHASONE
     Dosage: 20 MG, 4 TIMES 1,2,8,9
     Route: 065
     Dates: start: 20230613, end: 20230621
  4. DEXAMETHASONE [Suspect]
     Active Substance: DEXAMETHASONE
     Dosage: 12 MG, 2 TIMENS 15,16
     Route: 065
     Dates: start: 20230627, end: 20230628
  5. DEXAMETHASONE [Suspect]
     Active Substance: DEXAMETHASONE
     Dosage: 20 MG, 2 TIMES 22,23
     Route: 065
     Dates: start: 20230704, end: 20230705
  6. DEXAMETHASONE [Suspect]
     Active Substance: DEXAMETHASONE
     Dosage: 12 MG, 6 TIMES 1,2,8,9,15,16
     Route: 065
     Dates: start: 20230711, end: 20230726
  7. DEXAMETHASONE [Suspect]
     Active Substance: DEXAMETHASONE
     Dosage: 20 MG, 2 TIMES 22,23
     Route: 065
     Dates: start: 20230801, end: 20230802
  8. DEXAMETHASONE [Suspect]
     Active Substance: DEXAMETHASONE
     Dosage: 12 MG, 6 TIMES 1,2,8,9,15,16
     Route: 065
     Dates: start: 20230808, end: 20230823
  9. ISATUXIMAB [Suspect]
     Active Substance: ISATUXIMAB
     Indication: Plasma cell myeloma refractory
     Dosage: 850 MG, 4 TIMES 1,8,15,22
     Route: 065
     Dates: start: 20230417, end: 20230508
  10. ISATUXIMAB [Suspect]
     Active Substance: ISATUXIMAB
     Dosage: 790 MG, QW
     Route: 065
     Dates: start: 20230515, end: 20230530
  11. ISATUXIMAB [Suspect]
     Active Substance: ISATUXIMAB
     Dosage: 790 MG, BIW
     Route: 065
     Dates: start: 20230613, end: 20230627
  12. ISATUXIMAB [Suspect]
     Active Substance: ISATUXIMAB
     Dosage: 790 MG, BIW
     Route: 065
     Dates: start: 20230711, end: 20230725
  13. ISATUXIMAB [Suspect]
     Active Substance: ISATUXIMAB
     Dosage: 790 MG, BIW
     Route: 065
     Dates: start: 20230808, end: 20230822
  14. CARFILZOMIB [Suspect]
     Active Substance: CARFILZOMIB
     Indication: Plasma cell myeloma refractory
     Dosage: 40 MG, 4 TIMES 1,2
     Route: 065
     Dates: start: 20230417, end: 20230418
  15. CARFILZOMIB [Suspect]
     Active Substance: CARFILZOMIB
     Dosage: 112 MG, 4 TIMES 8,9,15,16
     Route: 065
     Dates: start: 20230424, end: 20230503
  16. CARFILZOMIB [Suspect]
     Active Substance: CARFILZOMIB
     Dosage: 109 MG, 6 TIMES, 1,2,8,9,15,16
     Route: 065
     Dates: start: 20230515, end: 20230531
  17. CARFILZOMIB [Suspect]
     Active Substance: CARFILZOMIB
     Dosage: 109 MG, 6 TIMES 1,2,8,9,15,16
     Route: 065
     Dates: start: 20230613, end: 20230628
  18. CARFILZOMIB [Suspect]
     Active Substance: CARFILZOMIB
     Dosage: 109 MG, 6 TIMES 1,2,8,9,15,16
     Route: 065
     Dates: start: 20230711, end: 20230726
  19. CARFILZOMIB [Suspect]
     Active Substance: CARFILZOMIB
     Dosage: 109 MG, 6 TIMES 1,2,8,9,15,16
     Route: 065
     Dates: start: 20230808, end: 20230823
  20. MONTELUKAST [Concomitant]
     Active Substance: MONTELUKAST
     Indication: Prophylaxis
     Dosage: UNK
     Route: 065
     Dates: start: 20230417
  21. CLEMASTINE [Concomitant]
     Active Substance: CLEMASTINE
     Indication: Prophylaxis
     Dosage: UNK
     Route: 065
     Dates: start: 20230417
  22. CANDESARTAN [Concomitant]
     Active Substance: CANDESARTAN
     Indication: Hypertension
     Dosage: UNK
     Route: 065
     Dates: start: 2013
  23. LEVOTHYROXINE [Concomitant]
     Active Substance: LEVOTHYROXINE
     Indication: Hypothyroidism
     Dosage: UNK
     Route: 065
     Dates: start: 2009
  24. OCTAGAM IMMUNE GLOBULIN (HUMAN) [Concomitant]
     Active Substance: HUMAN IMMUNOGLOBULIN G
     Indication: Cell-mediated immune deficiency
     Route: 065
  25. ZOMETA [Concomitant]
     Active Substance: ZOLEDRONIC ACID
     Indication: Prophylaxis
     Dosage: UNK
     Dates: start: 20221214

REACTIONS (4)
  - Thrombocytopenia [Recovered/Resolved]
  - Stomatitis [Recovered/Resolved]
  - Infusion related reaction [Recovered/Resolved]
  - Anaemia [Recovered/Resolved]

NARRATIVE: CASE EVENT DATE: 20230417
